FAERS Safety Report 24316111 (Version 1)
Quarter: 2024Q3

REPORT INFORMATION
  Report Type: Spontaneous
  Country: FR (occurrence: FR)
  Receive Date: 20240913
  Receipt Date: 20240913
  Transmission Date: 20241017
  Serious: Yes (Other)
  Sender: ORGANON
  Company Number: FR-ORGANON-O2409FRA000489

PATIENT
  Age: 66 Year
  Sex: Male

DRUGS (3)
  1. SINEMET [Interacting]
     Active Substance: CARBIDOPA\LEVODOPA
     Indication: Parkinsonism
     Dosage: 0.5 DOSAGE FORM, TID (IN THE BEGINING WITH 1/2 MORNING, NOON AND EVENING)
     Route: 048
     Dates: start: 202206
  2. SINEMET [Interacting]
     Active Substance: CARBIDOPA\LEVODOPA
     Dosage: 1 DOSAGE FORM, TID (MORNING, NOON AND EVENING AND FOR 2 MONTHS)
     Route: 048
  3. SINEMET [Interacting]
     Active Substance: CARBIDOPA\LEVODOPA
     Dosage: 1 DOSAGE FORM, QID (1 TABLET AT NOON + 1 TABLET IN THE MORNING + 1 TABELET AT 4PM + 1 TABLET IN EVEN
     Route: 048

REACTIONS (7)
  - Colitis ischaemic [Not Recovered/Not Resolved]
  - Penis disorder [Not Recovered/Not Resolved]
  - Tremor [Unknown]
  - Gait disturbance [Unknown]
  - Labelled drug-food interaction issue [Unknown]
  - Incorrect dose administered [Unknown]
  - Product prescribing error [Unknown]

NARRATIVE: CASE EVENT DATE: 20220601
